FAERS Safety Report 8437821-4 (Version None)
Quarter: 2012Q2

REPORT INFORMATION
  Report Type: 
  Country: None (occurrence: None)
  Receive Date: 20120614
  Receipt Date: 20120509
  Transmission Date: 20120825
  Serious: No
  Sender: FDA-Public Use
  Company Number: US-AMGEN-USASP2012029466

PATIENT
  Sex: Female

DRUGS (4)
  1. CALCIUM [Concomitant]
  2. XELODA [Concomitant]
  3. VITAMIN D [Concomitant]
  4. XGEVA [Suspect]
     Indication: BREAST CANCER METASTATIC
     Dosage: UNK
     Dates: start: 20120405

REACTIONS (6)
  - PAIN [None]
  - INSOMNIA [None]
  - BACK PAIN [None]
  - ARTHRALGIA [None]
  - PARAESTHESIA [None]
  - PARAESTHESIA ORAL [None]
